FAERS Safety Report 7632530-3 (Version None)
Quarter: 2011Q3

REPORT INFORMATION
  Report Type: 
  Country: None (occurrence: None)
  Receive Date: 20110725
  Receipt Date: 20101004
  Transmission Date: 20111222
  Serious: No
  Sender: FDA-Public Use
  Company Number: US-BRISTOL-MYERS SQUIBB COMPANY-15315989

PATIENT
  Age: 81 Year
  Sex: Female

DRUGS (2)
  1. LOVENOX [Suspect]
     Indication: CEREBROVASCULAR ACCIDENT
     Dosage: ONGOING.
     Dates: start: 20100901
  2. COUMADIN [Suspect]
     Indication: CEREBROVASCULAR ACCIDENT
     Dosage: DOSE INCREASED TO 10MG ON 21-SEP-2010
     Dates: start: 20100901

REACTIONS (1)
  - THERAPEUTIC RESPONSE DECREASED [None]
